FAERS Safety Report 5694042-6 (Version None)
Quarter: 2008Q2

REPORT INFORMATION
  Report Type: 
  Country: None (occurrence: None)
  Receive Date: 20080401
  Receipt Date: 20080321
  Transmission Date: 20081010
  Serious: Yes (Other)
  Sender: FDA-Public Use
  Company Number: CHNY2008JP01379

PATIENT

DRUGS (3)
  1. CLEMASTINE FUMARATE [Suspect]
     Dosage: ORAL
     Route: 048
  2. ACETAMINOPHEN [Suspect]
  3. LEVOFLOXACIN [Suspect]

REACTIONS (1)
  - CONVULSION [None]
